FAERS Safety Report 9479414 (Version 2)
Quarter: 2013Q4

REPORT INFORMATION
  Report Type: Spontaneous
  Country: GB (occurrence: GB)
  Receive Date: 20130827
  Receipt Date: 20131122
  Transmission Date: 20140711
  Serious: Yes (Life-Threatening, Hospitalization, Other)
  Sender: FDA-Public Use
  Company Number: GB-WATSON-2013-15236

PATIENT
  Age: 58 Year
  Sex: Female

DRUGS (4)
  1. OMEPRAZOLE (UNKNOWN) [Suspect]
     Indication: GASTROOESOPHAGEAL REFLUX DISEASE
     Dosage: 20 MG INITIALLY, INCREASED TO 40 MG ON 13/05/13
     Route: 048
     Dates: start: 20130513, end: 20130709
  2. OMEPRAZOLE (UNKNOWN) [Suspect]
     Dosage: 20 MG INITIALLY, INCREASED TO 40 MG ON 13/05/13
     Route: 048
     Dates: start: 20130307, end: 20130512
  3. BENDROFLUMETHIAZIDE [Concomitant]
     Indication: HYPERTENSION
     Dosage: 2.5 MG, DAILY
     Route: 065
     Dates: start: 20070117, end: 20130709
  4. PERINDOPRIL [Concomitant]
     Indication: HYPERTENSION
     Dosage: 8 MG, DAILY
     Route: 065
     Dates: start: 20061204, end: 20130709

REACTIONS (5)
  - Tubulointerstitial nephritis [Recovering/Resolving]
  - Nausea [Unknown]
  - Urinary tract infection [Unknown]
  - Protein urine present [Unknown]
  - Renal failure acute [Unknown]
